FAERS Safety Report 10996547 (Version 1)
Quarter: 2015Q2

REPORT INFORMATION
  Report Type: Spontaneous
  Country: US (occurrence: None)
  Receive Date: 20150407
  Receipt Date: 20150407
  Transmission Date: 20150821
  Serious: Yes (Life-Threatening, Hospitalization)
  Sender: FDA-Public Use
  Company Number: None

PATIENT
  Age: 87 Year
  Sex: Female
  Weight: 67.59 kg

DRUGS (12)
  1. ATIVAN [Concomitant]
     Active Substance: LORAZEPAM
  2. LASIX [Concomitant]
     Active Substance: FUROSEMIDE
  3. BIZ SHOT [Concomitant]
  4. TYLENOL [Concomitant]
     Active Substance: ACETAMINOPHEN
  5. LORAZEPAM. [Concomitant]
     Active Substance: LORAZEPAM
  6. POTASSIUM CHLORIDE. [Concomitant]
     Active Substance: POTASSIUM CHLORIDE
  7. FOLIC ACID. [Concomitant]
     Active Substance: FOLIC ACID
  8. TOPROL XL [Concomitant]
     Active Substance: METOPROLOL SUCCINATE
  9. XARELTO [Suspect]
     Active Substance: RIVAROXABAN
     Indication: CEREBROVASCULAR ACCIDENT PROPHYLAXIS
     Dosage: 1 PILL 1 DAILY MOUTH
     Route: 048
     Dates: start: 20130501, end: 20140726
  10. XARELTO [Suspect]
     Active Substance: RIVAROXABAN
     Indication: CARDIOVASCULAR EVENT PROPHYLAXIS
     Dosage: 1 PILL 1 DAILY MOUTH
     Route: 048
     Dates: start: 20130501, end: 20140726
  11. COLACE [Concomitant]
     Active Substance: DOCUSATE SODIUM
  12. SIMVASTATIN. [Concomitant]
     Active Substance: SIMVASTATIN

REACTIONS (6)
  - Dyspnoea [None]
  - Gait disturbance [None]
  - Balance disorder [None]
  - Blood count abnormal [None]
  - Asthenia [None]
  - Haemorrhage [None]

NARRATIVE: CASE EVENT DATE: 20140811
